FAERS Safety Report 7465094-8 (Version None)
Quarter: 2011Q2

REPORT INFORMATION
  Report Type: 
  Country: None (occurrence: None)
  Receive Date: 20110509
  Receipt Date: 20110502
  Transmission Date: 20111010
  Serious: Yes (Hospitalization)
  Sender: FDA-Public Use
  Company Number: US-SANOFI-AVENTIS-2011SA027443

PATIENT
  Age: 64 Year
  Sex: Female

DRUGS (4)
  1. ALLEGRA D 24 HOUR [Suspect]
     Route: 048
     Dates: start: 20110101, end: 20110101
  2. FEXOFENADINE HCL [Suspect]
     Route: 048
  3. FEXOFENADINE HCL [Suspect]
     Route: 048
     Dates: start: 20110101
  4. ALLEGRA D 24 HOUR [Suspect]
     Route: 048
     Dates: start: 20110101, end: 20110101

REACTIONS (4)
  - HEADACHE [None]
  - DRUG INEFFECTIVE [None]
  - PAIN [None]
  - CARDIAC FAILURE [None]
